FAERS Safety Report 4336012-6 (Version None)
Quarter: 2004Q2

REPORT INFORMATION
  Report Type: 
  Country: None (occurrence: None)
  Receive Date: 20040406
  Receipt Date: 20040325
  Transmission Date: 20050107
  Serious: Yes (Hospitalization)
  Sender: FDA-Public Use
  Company Number: 04P-056-0255069-00

PATIENT
  Age: 72 Year
  Sex: Female

DRUGS (9)
  1. FERO -GRAD TABLETS (FERO-GRADUMET FILMTAB) (FERROUS SULFATE) (FERROUS [Suspect]
     Indication: UPPER RESPIRATORY TRACT INFECTION
     Dosage: PER ORAL
     Route: 048
     Dates: start: 20021212, end: 20030113
  2. FORCAPIL [Suspect]
     Dates: start: 20021212, end: 20030113
  3. TERBINAFINE [Suspect]
     Dates: start: 20021212, end: 20030113
  4. BETAMETHASONE [Suspect]
  5. POLERY [Concomitant]
  6. CEFPODOXIME PROXETIL [Concomitant]
  7. PSEUDOEPHEDRINE HCL [Concomitant]
  8. DERINOX [Concomitant]
  9. TIXOCORTOL PIVALATE [Concomitant]

REACTIONS (3)
  - INFLAMMATION [None]
  - RENAL FAILURE [None]
  - STEVENS-JOHNSON SYNDROME [None]
